FAERS Safety Report 7077226-4 (Version None)
Quarter: 2010Q4

REPORT INFORMATION
  Report Type: 
  Country: None (occurrence: None)
  Receive Date: 20101101
  Receipt Date: 20101019
  Transmission Date: 20110411
  Serious: Yes (Hospitalization)
  Sender: FDA-Public Use
  Company Number: US-ELI_LILLY_AND_COMPANY-US201009005278

PATIENT
  Age: 69 Year
  Sex: Male

DRUGS (10)
  1. PRASUGREL HYDROCHLORIDE [Suspect]
     Indication: ACUTE CORONARY SYNDROME
     Dosage: 10 MG, UNK
  2. PRASUGREL HYDROCHLORIDE [Suspect]
     Dosage: 60 MG, UNK
     Dates: start: 20100607
  3. ASPIRIN [Concomitant]
     Indication: CORONARY ARTERY DISEASE
     Dosage: 81 MG, UNK
     Route: 048
     Dates: end: 20100830
  4. ASPIRIN [Concomitant]
     Dosage: 325 MG, DAILY (1/D)
     Route: 048
     Dates: start: 20100830
  5. CARVEDILOL [Concomitant]
     Indication: CORONARY ARTERY DISEASE
     Dosage: 3.125 MG, 2/D
     Route: 048
  6. LIPITOR [Concomitant]
     Indication: HYPERLIPIDAEMIA
     Dosage: 20 MG, DAILY (1/D)
     Route: 048
  7. FOSAMAX [Concomitant]
     Dosage: 70 MG, UNKNOWN
     Route: 048
  8. LIPITOR [Concomitant]
     Indication: DYSLIPIDAEMIA
     Dosage: 20 MG, DAILY (1/D)
     Route: 048
  9. COREG [Concomitant]
     Indication: CORONARY ARTERY DISEASE
     Dosage: 3.125 UNK, 2/D
     Route: 048
  10. NIACIN [Concomitant]
     Indication: DYSLIPIDAEMIA
     Dosage: 2000 MG, DAILY (1/D)
     Route: 048

REACTIONS (1)
  - ANGINA PECTORIS [None]
